FAERS Safety Report 5321541-9 (Version None)
Quarter: 2007Q1

REPORT INFORMATION
  Report Type: 
  Country: None (occurrence: None)
  Receive Date: 20070220
  Receipt Date: 20070115
  Transmission Date: 20070707
  Serious: No
  Sender: FDA-Public Use
  Company Number: TPA2007A00109

PATIENT
  Age: 54 Year
  Sex: Female
  Weight: 53.978 kg

DRUGS (2)
  1. ROZEREM [Suspect]
     Indication: INSOMNIA
     Dosage: 8 MG QHS PER ORAL
     Route: 048
     Dates: start: 20070113, end: 20070114
  2. LUNESTA [Concomitant]

REACTIONS (2)
  - FEELING ABNORMAL [None]
  - POOR QUALITY SLEEP [None]
